FAERS Safety Report 7811441-4 (Version None)
Quarter: 2011Q4

REPORT INFORMATION
  Report Type: 
  Country: None (occurrence: None)
  Receive Date: 20111013
  Receipt Date: 20111013
  Transmission Date: 20120403
  Serious: Yes (Hospitalization)
  Sender: FDA-Public Use
  Company Number: US-PFIZER INC-2011230159

PATIENT
  Sex: Female
  Weight: 95.238 kg

DRUGS (12)
  1. NITROGLYCERIN [Concomitant]
     Dosage: UNK
     Route: 060
     Dates: start: 20060101
  2. EPLERENONE [Suspect]
     Indication: CARDIAC FAILURE CHRONIC
     Dosage: 50 MG, 1X/DAY, INTERVAL: DAILY
     Route: 048
     Dates: start: 20101012
  3. CRESTOR [Concomitant]
     Dosage: UNK
     Route: 048
     Dates: start: 20100504
  4. NITRGLYCERIN TRANSDERMAL SYSTEM [Concomitant]
     Indication: ANGINA PECTORIS
     Dosage: UNK
     Route: 062
     Dates: start: 20081001
  5. FUROSEMIDE [Concomitant]
     Indication: HYPERTENSION
     Dosage: UNK
     Route: 048
     Dates: start: 20100311
  6. DIGOXIN [Concomitant]
     Dosage: UNK
     Route: 048
     Dates: start: 20100311
  7. PROPYLTHIOURACIL [Concomitant]
     Dosage: UNK
     Route: 048
     Dates: start: 20110101
  8. METHIMAZOLE [Concomitant]
     Dosage: UNK
     Route: 048
     Dates: start: 20110101
  9. METOPROLOL SUCCINATE [Concomitant]
     Indication: HYPERTENSION
     Dosage: UNK
     Route: 048
     Dates: start: 20060101
  10. AMITRIPTYLINE [Concomitant]
     Dosage: UNK
     Route: 048
     Dates: start: 20100311
  11. VENTOLIN HFA [Concomitant]
     Dosage: UNK
     Route: 055
     Dates: start: 20101012
  12. RAMIPRIL [Concomitant]
     Indication: HYPERTENSION
     Dosage: UNK
     Route: 048
     Dates: start: 20091119

REACTIONS (1)
  - TOXIC NODULAR GOITRE [None]
